FAERS Safety Report 8556733-9 (Version None)
Quarter: 2012Q3

REPORT INFORMATION
  Report Type: 
  Country: None (occurrence: None)
  Receive Date: 20120801
  Receipt Date: 20120724
  Transmission Date: 20120928
  Serious: Yes (Other)
  Sender: FDA-Public Use
  Company Number: FR-ABBOTT-12P-056-0933775-00

PATIENT
  Age: 51 Year
  Sex: Female

DRUGS (9)
  1. REPAGLINIDE [Suspect]
     Indication: DIABETES MELLITUS
     Route: 048
  2. RISPERIDONE [Suspect]
     Indication: PRODUCT USED FOR UNKNOWN INDICATION
     Route: 048
     Dates: end: 20110101
  3. GLUCOPHAGE [Suspect]
     Indication: DIABETES MELLITUS
     Route: 048
  4. SITAGLIPTIN PHOSPHATE [Suspect]
     Indication: DIABETES MELLITUS
     Route: 048
  5. MEDIATOR [Suspect]
     Indication: DIABETES MELLITUS
     Route: 048
  6. DEPAKOTE [Suspect]
     Indication: BIPOLAR DISORDER
     Route: 048
     Dates: end: 20110101
  7. DIAMICRON [Suspect]
     Indication: DIABETES MELLITUS
     Route: 048
  8. METFORMIN HYDROCHLORIDE/VILDAGLIPTIN [Suspect]
     Indication: DIABETES MELLITUS
     Route: 048
  9. ABILIFY [Suspect]
     Indication: PRODUCT USED FOR UNKNOWN INDICATION
     Route: 048
     Dates: end: 20110101

REACTIONS (3)
  - METABOLIC DISORDER [None]
  - IRON DEFICIENCY ANAEMIA [None]
  - HEPATIC CIRRHOSIS [None]
